FAERS Safety Report 7070012-0 (Version None)
Quarter: 2010Q4

REPORT INFORMATION
  Report Type: 
  Country: None (occurrence: None)
  Receive Date: 20101028
  Receipt Date: 20100818
  Transmission Date: 20110411
  Serious: No
  Sender: FDA-Public Use
  Company Number: US-WYE-H17040610

PATIENT
  Sex: Female
  Weight: 80.36 kg

DRUGS (1)
  1. PROTONIX [Suspect]
     Route: 048
     Dates: start: 20100101, end: 20100801

REACTIONS (3)
  - CONDITION AGGRAVATED [None]
  - INCONTINENCE [None]
  - URINARY TRACT INFECTION [None]
